FAERS Safety Report 5618606-0 (Version None)
Quarter: 2008Q1

REPORT INFORMATION
  Report Type: 
  Country: None (occurrence: None)
  Receive Date: 20080205
  Receipt Date: 20080205
  Transmission Date: 20080703
  Serious: Yes (Other)
  Sender: FDA-Public Use
  Company Number: None

PATIENT
  Age: 22 Year
  Sex: Male
  Weight: 95.2554 kg

DRUGS (1)
  1. CHANTIX [Suspect]
     Indication: SMOKING CESSATION THERAPY
     Dosage: 1 PER DAY, INCREASING TO 2 PER  PO
     Route: 048
     Dates: start: 20070924, end: 20071003

REACTIONS (10)
  - ABNORMAL DREAMS [None]
  - AGGRESSION [None]
  - ALCOHOL ABUSE [None]
  - AMNESIA [None]
  - CONTUSION [None]
  - LOSS OF CONSCIOUSNESS [None]
  - SKIN LACERATION [None]
  - SKULL FRACTURE [None]
  - UNEVALUABLE EVENT [None]
  - VICTIM OF CRIME [None]
